FAERS Safety Report 6136371-8 (Version None)
Quarter: 2009Q1

REPORT INFORMATION
  Report Type: 
  Country: None (occurrence: None)
  Receive Date: 20090330
  Receipt Date: 20090316
  Transmission Date: 20090719
  Serious: Yes (Other)
  Sender: FDA-Public Use
  Company Number: US-ROCHE-618347

PATIENT
  Sex: Female

DRUGS (2)
  1. XELODA [Suspect]
     Route: 065
  2. FENTANYL TRANSDERMAL SYSTEM [Concomitant]
     Dosage: DRUG: FENTANYL PAIN PATCH

REACTIONS (3)
  - ARTHRALGIA [None]
  - DISEASE PROGRESSION [None]
  - JOINT SWELLING [None]
